FAERS Safety Report 23701356 (Version 1)
Quarter: 2024Q2

REPORT INFORMATION
  Report Type: Spontaneous
  Country: US (occurrence: None)
  Receive Date: 20240402
  Receipt Date: 20240402
  Transmission Date: 20240716
  Serious: No
  Sender: FDA-Public Use
  Company Number: None

PATIENT
  Age: 41 Year
  Sex: Female
  Weight: 54 kg

DRUGS (3)
  1. DYSPORT [Suspect]
     Active Substance: ABOBOTULINUMTOXINA
     Route: 061
     Dates: start: 20220729
  2. VITAMINS [Concomitant]
     Active Substance: VITAMINS
  3. GABAPENTINE [Concomitant]

REACTIONS (4)
  - Muscle twitching [None]
  - Overdose [None]
  - Drug hypersensitivity [None]
  - Hypoaesthesia [None]

NARRATIVE: CASE EVENT DATE: 20220729
